FAERS Safety Report 4814975-X (Version None)
Quarter: 2005Q4

REPORT INFORMATION
  Report Type: 
  Country: None (occurrence: None)
  Receive Date: 20051028
  Receipt Date: 20051018
  Transmission Date: 20060501
  Serious: Yes (Hospitalization)
  Sender: FDA-Public Use
  Company Number: US-JNJFOC-20050800464

PATIENT
  Age: 57 Year
  Sex: Female

DRUGS (8)
  1. TOPAMAX [Suspect]
     Route: 048
  2. TOPAMAX [Suspect]
     Route: 048
  3. TEGRETOL [Suspect]
     Route: 048
  4. SYNTHROID [Concomitant]
     Indication: HORMONE REPLACEMENT THERAPY
     Route: 048
  5. CELEXA [Concomitant]
     Indication: DEPRESSION
     Route: 065
  6. ESTRIOL [Concomitant]
     Indication: HORMONE REPLACEMENT THERAPY
     Route: 048
  7. AMITRIPTYLINE HCL [Concomitant]
     Indication: SLEEP DISORDER THERAPY
     Route: 065
  8. DESYREL [Concomitant]
     Indication: INSOMNIA
     Route: 065

REACTIONS (3)
  - ANTICONVULSANT DRUG LEVEL INCREASED [None]
  - GALLBLADDER DISORDER [None]
  - ROAD TRAFFIC ACCIDENT [None]
